FAERS Safety Report 12364972 (Version 1)
Quarter: 2016Q2

REPORT INFORMATION
  Report Type: Spontaneous
  Country: US (occurrence: None)
  Receive Date: 20160512
  Receipt Date: 20160512
  Transmission Date: 20160815
  Serious: Yes (Life-Threatening, Hospitalization)
  Sender: FDA-Public Use
  Company Number: None

PATIENT
  Age: 63 Year
  Sex: Male
  Weight: 101.61 kg

DRUGS (12)
  1. ASPIRIN. [Concomitant]
     Active Substance: ASPIRIN
  2. CLONIDINE. [Concomitant]
     Active Substance: CLONIDINE
  3. LACTULOSE. [Concomitant]
     Active Substance: LACTULOSE
  4. DIVALPROEX ER [Concomitant]
     Active Substance: DIVALPROEX SODIUM
  5. DOCUSATE CALCIUM. [Concomitant]
     Active Substance: DOCUSATE CALCIUM
  6. FLUPHENAZINE DECANOATE, 25 MG/ML [Suspect]
     Active Substance: FLUPHENAZINE DECANOATE
     Indication: SCHIZOPHRENIA
     Route: 030
     Dates: start: 20150421, end: 20160317
  7. AMLODIPINE [Concomitant]
     Active Substance: AMLODIPINE BESYLATE
  8. FLUPHENAZINE, 5 MG [Suspect]
     Active Substance: FLUPHENAZINE HYDROCHLORIDE
     Indication: SCHIZOPHRENIA
     Dosage: 5 MG Q 12 HOURS, PRN ORAL
     Route: 048
     Dates: start: 20150424, end: 20160327
  9. TAMSULOSIN [Concomitant]
     Active Substance: TAMSULOSIN
  10. ATORVASTATIN [Concomitant]
     Active Substance: ATORVASTATIN
  11. BENZTROPINE [Concomitant]
     Active Substance: BENZTROPINE
  12. CLONAZEPAM. [Concomitant]
     Active Substance: CLONAZEPAM

REACTIONS (8)
  - Balance disorder [None]
  - Subdural haematoma [None]
  - Condition aggravated [None]
  - Gait disturbance [None]
  - Subarachnoid haemorrhage [None]
  - Fall [None]
  - Urinary incontinence [None]
  - Psychiatric symptom [None]

NARRATIVE: CASE EVENT DATE: 20160308
